FAERS Safety Report 15556029 (Version 2)
Quarter: 2018Q4

REPORT INFORMATION
  Report Type: Report from Study
  Country: US (occurrence: US)
  Receive Date: 20181026
  Receipt Date: 20181105
  Transmission Date: 20190205
  Serious: Yes (Hospitalization)
  Sender: FDA-Public Use
  Company Number: US-EISAI MEDICAL RESEARCH-EC-2018-037885

PATIENT
  Age: 66 Year
  Sex: Male
  Weight: 106 kg

DRUGS (5)
  1. LENVIMA [Suspect]
     Active Substance: LENVATINIB
     Indication: THYROID CANCER
     Route: 048
     Dates: start: 20180330, end: 20180424
  2. LENVIMA [Suspect]
     Active Substance: LENVATINIB
     Route: 048
     Dates: start: 20180523, end: 2018
  3. LENVIMA [Suspect]
     Active Substance: LENVATINIB
     Route: 048
     Dates: start: 2018, end: 2018
  4. LENVIMA [Suspect]
     Active Substance: LENVATINIB
     Route: 048
     Dates: start: 2018, end: 2018
  5. LENVIMA [Suspect]
     Active Substance: LENVATINIB
     Dosage: UNSPECIFIED LOWER DOSE
     Route: 048
     Dates: start: 2018

REACTIONS (19)
  - Blood pressure increased [Recovering/Resolving]
  - Abdominal pain upper [Unknown]
  - Peripheral swelling [Unknown]
  - Nausea [Unknown]
  - Vomiting [Unknown]
  - Joint swelling [Unknown]
  - Dysphonia [Not Recovered/Not Resolved]
  - Glossodynia [Unknown]
  - Muscular weakness [Unknown]
  - Saliva altered [Recovering/Resolving]
  - Dysphagia [Recovering/Resolving]
  - Abdominal pain [Unknown]
  - Blood pressure fluctuation [Unknown]
  - Oral discomfort [Recovering/Resolving]
  - Tongue discomfort [Unknown]
  - Oropharyngeal pain [Recovering/Resolving]
  - Cholangitis [Unknown]
  - Dyspnoea [Unknown]
  - Pain in extremity [Unknown]

NARRATIVE: CASE EVENT DATE: 2018
